FAERS Safety Report 23757326 (Version 1)
Quarter: 2024Q2

REPORT INFORMATION
  Report Type: Spontaneous
  Country: DE (occurrence: DE)
  Receive Date: 20240418
  Receipt Date: 20240418
  Transmission Date: 20240716
  Serious: Yes (Other)
  Sender: FDA-Public Use
  Company Number: DE-BRISTOL-MYERS SQUIBB COMPANY-2024-059725

PATIENT
  Sex: Female

DRUGS (2)
  1. ELIQUIS [Suspect]
     Active Substance: APIXABAN
     Indication: Pulmonary embolism
     Dates: start: 2020
  2. ELIQUIS [Suspect]
     Active Substance: APIXABAN
     Dates: start: 202403

REACTIONS (7)
  - Eye haemorrhage [Unknown]
  - Epistaxis [Unknown]
  - Large intestinal haemorrhage [Unknown]
  - Autoimmune disorder [Unknown]
  - Alopecia [Unknown]
  - Pruritus [Unknown]
  - Off label use [Unknown]
